FAERS Safety Report 8150442-6 (Version None)
Quarter: 2012Q1

REPORT INFORMATION
  Report Type: 
  Country: None (occurrence: None)
  Receive Date: 20120220
  Receipt Date: 20120216
  Transmission Date: 20120608
  Serious: Yes (Other)
  Sender: FDA-Public Use
  Company Number: AU-PFIZER INC-2011297920

PATIENT
  Age: 70 Year
  Sex: Male

DRUGS (1)
  1. SULFASALAZINE [Suspect]
     Indication: ARTHRITIS REACTIVE
     Dosage: UNK

REACTIONS (1)
  - INTESTINAL PERFORATION [None]
